FAERS Safety Report 10192699 (Version 1)
Quarter: 2014Q2

REPORT INFORMATION
  Report Type: Report from Study
  Country: US (occurrence: US)
  Receive Date: 20140523
  Receipt Date: 20140523
  Transmission Date: 20141212
  Serious: Yes (Hospitalization)
  Sender: FDA-Public Use
  Company Number: US-ACTELION-A-NJ2014-99460

PATIENT
  Age: 63 Year
  Sex: Male

DRUGS (3)
  1. VELETRI [Suspect]
     Indication: CHRONIC OBSTRUCTIVE PULMONARY DISEASE
     Dosage: 15 NG/KG, PER MIN
     Route: 042
     Dates: start: 20130925
  2. VIAGRA [Concomitant]
  3. WARFARIN [Concomitant]

REACTIONS (1)
  - Tooth extraction [Unknown]
